FAERS Safety Report 7072150-5 (Version None)
Quarter: 2010Q4

REPORT INFORMATION
  Report Type: 
  Country: None (occurrence: None)
  Receive Date: 20101029
  Receipt Date: 20091209
  Transmission Date: 20110411
  Serious: No
  Sender: FDA-Public Use
  Company Number: A0834301A

PATIENT
  Age: 67 Year
  Sex: Male

DRUGS (7)
  1. ADVAIR DISKUS 100/50 [Suspect]
     Indication: ASTHMA
     Dosage: 1PUFF TWICE PER DAY
     Route: 055
     Dates: start: 20090501
  2. FLOVENT [Suspect]
     Indication: ASTHMA
     Dosage: 1SPR TWICE PER DAY
     Route: 055
     Dates: start: 20070401, end: 20090401
  3. AMLODIPINE [Concomitant]
  4. LIPITOR [Concomitant]
  5. AVODART [Concomitant]
  6. FLOMAX [Concomitant]
  7. PROAIR HFA [Concomitant]

REACTIONS (1)
  - DRUG INEFFECTIVE [None]
